FAERS Safety Report 10102367 (Version 2)
Quarter: 2014Q2

REPORT INFORMATION
  Report Type: Report from Study
  Country: IE (occurrence: IE)
  Receive Date: 20140424
  Receipt Date: 20140424
  Transmission Date: 20141212
  Serious: Yes (Hospitalization, Other)
  Sender: FDA-Public Use
  Company Number: PHHY2013IE126927

PATIENT
  Age: 43 Year
  Sex: Female

DRUGS (5)
  1. GILENYA [Suspect]
     Indication: RELAPSING-REMITTING MULTIPLE SCLEROSIS
     Dosage: 0.5 MG, QD
     Route: 048
     Dates: start: 20130703, end: 20131106
  2. GILENYA [Suspect]
     Dosage: 0.5 MG, QD
     Route: 048
     Dates: start: 20140110
  3. LOSARTAN [Concomitant]
     Dosage: 50 MG, DAILY
  4. PERINDOPRIL [Concomitant]
     Dosage: 5 MG, DAILY
  5. TETRACYCLINE [Concomitant]
     Dosage: 300 MG, DAILY

REACTIONS (5)
  - Multiple sclerosis relapse [Unknown]
  - Hypoaesthesia [Unknown]
  - Optic neuritis [Unknown]
  - Macular oedema [Recovered/Resolved]
  - Uveitis [Unknown]
